FAERS Safety Report 8025380-X (Version None)
Quarter: 2012Q1

REPORT INFORMATION
  Report Type: 
  Country: None (occurrence: None)
  Receive Date: 20120105
  Receipt Date: 20111229
  Transmission Date: 20120608
  Serious: Yes (Hospitalization)
  Sender: FDA-Public Use
  Company Number: US-PFIZER INC-2011297932

PATIENT
  Sex: Male
  Weight: 74.83 kg

DRUGS (3)
  1. CAMPTOSAR [Suspect]
     Indication: COLORECTAL CANCER METASTATIC
     Dosage: 100 MG/M2, ON DAYS 1 AND 8
     Route: 042
     Dates: start: 20100503, end: 20111128
  2. ERBITUX [Suspect]
     Indication: COLORECTAL CANCER METASTATIC
     Dosage: 250 MG/M2, ON DAYS 1, 8 AND 15
     Route: 042
     Dates: start: 20100503, end: 20101210
  3. RAD 001 [Suspect]
     Indication: COLORECTAL CANCER METASTATIC
     Dosage: 5 MG, EVERY OTHER DAY
     Route: 048
     Dates: start: 20100503

REACTIONS (1)
  - HYPERKALAEMIA [None]
